FAERS Safety Report 16472196 (Version 1)
Quarter: 2019Q2

REPORT INFORMATION
  Report Type: Spontaneous
  Country: DE (occurrence: DE)
  Receive Date: 20190625
  Receipt Date: 20190625
  Transmission Date: 20190711
  Serious: Yes (Other)
  Sender: FDA-Public Use
  Company Number: DE-ROCHE-2342958

PATIENT

DRUGS (1)
  1. XOLAIR [Suspect]
     Active Substance: OMALIZUMAB
     Indication: ALLERGY TO ARTHROPOD STING
     Route: 058

REACTIONS (3)
  - Anaphylactic reaction [Unknown]
  - Arthropod sting [Unknown]
  - Off label use [Unknown]
